FAERS Safety Report 10419267 (Version 1)
Quarter: 2014Q3

REPORT INFORMATION
  Report Type: Report from Study
  Country: NL (occurrence: NL)
  Receive Date: 20140829
  Receipt Date: 20140829
  Transmission Date: 20150326
  Serious: Yes (Death)
  Sender: FDA-Public Use
  Company Number: NL-GLAXOSMITHKLINE-B1027111A

PATIENT

DRUGS (2)
  1. OXALIPLATIN. [Suspect]
     Active Substance: OXALIPLATIN
     Indication: METASTASES TO LIVER
     Dosage: 150MG PER DAY
  2. MELPHALAN [Suspect]
     Active Substance: MELPHALAN
     Indication: METASTASES TO LIVER
     Dosage: 100MG PER DAY
     Route: 065

REACTIONS (2)
  - Hepatotoxicity [Fatal]
  - Venoocclusive liver disease [Fatal]
